FAERS Safety Report 8801600 (Version 2)
Quarter: 2012Q4

REPORT INFORMATION
  Report Type: 
  Country: FR (occurrence: FR)
  Receive Date: 20120921
  Receipt Date: 20121217
  Transmission Date: 20130627
  Serious: Yes (Hospitalization)
  Sender: FDA-Public Use
  Company Number: FR-ROCHE-1122232

PATIENT
  Age: 51 Year
  Sex: Female

DRUGS (3)
  1. AVASTIN [Suspect]
     Indication: LUNG ADENOCARCINOMA
     Route: 042
     Dates: end: 20120731
  2. ALIMTA [Suspect]
     Indication: LUNG ADENOCARCINOMA
     Route: 042
     Dates: end: 20120731
  3. CARBOPLATIN [Concomitant]

REACTIONS (3)
  - Febrile bone marrow aplasia [Recovered/Resolved]
  - Anaemia [Not Recovered/Not Resolved]
  - Thrombocytopenia [Not Recovered/Not Resolved]
